FAERS Safety Report 10470316 (Version 1)
Quarter: 2014Q3

REPORT INFORMATION
  Report Type: Spontaneous
  Country: US (occurrence: US)
  Receive Date: 20140923
  Receipt Date: 20140923
  Transmission Date: 20150326
  Serious: Yes (Other)
  Sender: FDA-Public Use
  Company Number: US-PFIZER INC-2014260884

PATIENT
  Sex: Female

DRUGS (1)
  1. PRISTIQ EXTENDED RELEASE [Suspect]
     Active Substance: DESVENLAFAXINE SUCCINATE
     Dosage: UNK

REACTIONS (8)
  - Crying [Unknown]
  - Nausea [Unknown]
  - Abnormal behaviour [Unknown]
  - Vomiting [Unknown]
  - Nervousness [Unknown]
  - Anxiety [Unknown]
  - Suicidal ideation [Unknown]
  - Irritability [Unknown]
